FAERS Safety Report 6691231-9 (Version None)
Quarter: 2010Q2

REPORT INFORMATION
  Report Type: 
  Country: None (occurrence: None)
  Receive Date: 20100422
  Receipt Date: 20100413
  Transmission Date: 20101027
  Serious: No
  Sender: FDA-Public Use
  Company Number: US-BIOGENIDEC-2010BI012204

PATIENT
  Age: 58 Year
  Sex: Female

DRUGS (3)
  1. AVONEX [Suspect]
     Indication: MULTIPLE SCLEROSIS
     Route: 030
     Dates: start: 19980119
  2. AVONEX [Suspect]
     Route: 030
  3. CLONAZEPAM [Concomitant]
     Indication: DEPRESSION

REACTIONS (6)
  - ANXIETY [None]
  - DEREALISATION [None]
  - FALL [None]
  - HALLUCINATION, AUDITORY [None]
  - HEAD INJURY [None]
  - LOSS OF CONSCIOUSNESS [None]
